FAERS Safety Report 6366496-3 (Version None)
Quarter: 2009Q3

REPORT INFORMATION
  Report Type: 
  Country: None (occurrence: None)
  Receive Date: 20090915
  Receipt Date: 20090908
  Transmission Date: 20100115
  Serious: Yes (Other)
  Sender: FDA-Public Use
  Company Number: AMI0014365

PATIENT
  Age: 89 Year
  Sex: Female

DRUGS (2)
  1. TIMOLOL MALEATE [Suspect]
     Dosage: OPHTHALMIC
     Route: 047
  2. QUETIAPINE FUMARATE [Suspect]

REACTIONS (3)
  - EXTRAPYRAMIDAL DISORDER [None]
  - HALLUCINATION [None]
  - NEUROLEPTIC MALIGNANT SYNDROME [None]
